FAERS Safety Report 18078083 (Version 2)
Quarter: 2020Q3

REPORT INFORMATION
  Report Type: Spontaneous
  Country: US (occurrence: US)
  Receive Date: 20200727
  Receipt Date: 20200910
  Transmission Date: 20201103
  Serious: Yes (Hospitalization)
  Sender: FDA-Public Use
  Company Number: US-SEATTLE GENETICS-2020SGN02955

PATIENT
  Sex: Female

DRUGS (3)
  1. TUKYSA [Suspect]
     Active Substance: TUCATINIB
     Indication: BREAST CANCER FEMALE
  2. HERCEPTIN [Suspect]
     Active Substance: TRASTUZUMAB
  3. XELODA [Suspect]
     Active Substance: CAPECITABINE

REACTIONS (4)
  - Thyroidectomy [Unknown]
  - Nausea [Unknown]
  - Headache [Unknown]
  - Cellulitis [Unknown]
